FAERS Safety Report 10389571 (Version 1)
Quarter: 2014Q3

REPORT INFORMATION
  Report Type: Spontaneous
  Country: US (occurrence: US)
  Receive Date: 20140818
  Receipt Date: 20140818
  Transmission Date: 20150326
  Serious: Yes (Hospitalization)
  Sender: FDA-Public Use
  Company Number: US-B.I. PHARMACEUTICALS,INC./RIDGEFIELD-2014-BI-37115BP

PATIENT
  Age: 65 Year
  Sex: Female

DRUGS (11)
  1. GLYBURIDE. [Concomitant]
     Active Substance: GLYBURIDE
     Dosage: 10 MG
     Route: 065
  2. CATAPRES [Concomitant]
     Active Substance: CLONIDINE HYDROCHLORIDE
     Dosage: 0.3 MG
     Route: 065
  3. BYETTA [Concomitant]
     Active Substance: EXENATIDE
     Dosage: 10 MG
     Route: 065
  4. LASIX [Concomitant]
     Active Substance: FUROSEMIDE
     Dosage: 20 NR
     Route: 065
  5. KLOR-CON [Concomitant]
     Active Substance: POTASSIUM CHLORIDE
     Dosage: 40 NR
     Route: 065
  6. PRADAXA [Suspect]
     Active Substance: DABIGATRAN ETEXILATE MESYLATE
     Indication: ATRIAL FIBRILLATION
     Route: 065
     Dates: start: 201310
  7. TENORETIC [Concomitant]
     Active Substance: ATENOLOL\CHLORTHALIDONE
     Dosage: DOSE PER APPLICATION AND DAILY DOSE: 50/25
     Route: 065
  8. ZOCOR [Concomitant]
     Active Substance: SIMVASTATIN
     Dosage: 40 NR
     Route: 065
  9. ACTOS [Concomitant]
     Active Substance: PIOGLITAZONE HYDROCHLORIDE
     Dosage: 30 NR
     Route: 065
  10. GLUCOPHAGE [Concomitant]
     Active Substance: METFORMIN HYDROCHLORIDE
     Dosage: 1000 NR
     Route: 065
  11. NAPROSYN [Concomitant]
     Active Substance: NAPROXEN
     Dosage: 1000 NR
     Route: 065

REACTIONS (2)
  - Upper gastrointestinal haemorrhage [Unknown]
  - Anaemia [Recovered/Resolved]

NARRATIVE: CASE EVENT DATE: 20131008
